FAERS Safety Report 12628676 (Version 1)
Quarter: 2016Q3

REPORT INFORMATION
  Report Type: Spontaneous
  Country: US (occurrence: None)
  Receive Date: 20160805
  Receipt Date: 20160805
  Transmission Date: 20161109
  Serious: No
  Sender: FDA-Public Use
  Company Number: None

PATIENT
  Age: 40 Year
  Sex: Female
  Weight: 61.24 kg

DRUGS (5)
  1. CAFFEINE. [Concomitant]
     Active Substance: CAFFEINE
  2. PYRIDOSTIGMINE [Concomitant]
     Active Substance: PYRIDOSTIGMINE
  3. RANITIDINE. [Concomitant]
     Active Substance: RANITIDINE
  4. SERTRALINE [Suspect]
     Active Substance: SERTRALINE HYDROCHLORIDE
     Indication: DEPRESSION
     Dosage: 1 TABLET AT BEDTIME
     Route: 048
     Dates: start: 20150917, end: 20160229
  5. GABAPENTIN. [Concomitant]
     Active Substance: GABAPENTIN

REACTIONS (2)
  - Dysstasia [None]
  - Asthenia [None]

NARRATIVE: CASE EVENT DATE: 20150917
